FAERS Safety Report 15808536 (Version 1)
Quarter: 2019Q1

REPORT INFORMATION
  Report Type: Report from Study
  Country: US (occurrence: US)
  Receive Date: 20190110
  Receipt Date: 20190110
  Transmission Date: 20190417
  Serious: Yes (Death)
  Sender: FDA-Public Use
  Company Number: US-TEVA-2019-US-994642

PATIENT
  Age: 11 Month
  Sex: Male

DRUGS (1)
  1. FENTANYL. [Suspect]
     Active Substance: FENTANYL
     Dosage: FORM OF ADMIN: UNKNOWN
     Route: 048

REACTIONS (4)
  - Accidental exposure to product by child [Fatal]
  - Unresponsive to stimuli [Fatal]
  - Pulmonary congestion [Fatal]
  - Toxicity to various agents [Fatal]
